APPROVED DRUG PRODUCT: MENTAX
Active Ingredient: BUTENAFINE HYDROCHLORIDE
Strength: 1%
Dosage Form/Route: CREAM;TOPICAL
Application: N020524 | Product #001
Applicant: PHARMOBEDIENT CONSULTING LLC
Approved: Oct 18, 1996 | RLD: Yes | RS: No | Type: DISCN